FAERS Safety Report 23551904 (Version 1)
Quarter: 2024Q1

REPORT INFORMATION
  Report Type: Spontaneous
  Country: ES (occurrence: ES)
  Receive Date: 20240222
  Receipt Date: 20240222
  Transmission Date: 20240410
  Serious: Yes (Other)
  Sender: FDA-Public Use
  Company Number: ES-Eisai-EC-2023-154689

PATIENT
  Age: 8 Month
  Sex: Male

DRUGS (2)
  1. LEVETIRACETAM [Suspect]
     Active Substance: LEVETIRACETAM
     Indication: Product used for unknown indication
     Dosage: 1000 MILLIGRAM
     Route: 064
     Dates: start: 2023, end: 20231024
  2. FYCOMPA [Suspect]
     Active Substance: PERAMPANEL
     Indication: Foetal exposure during pregnancy
     Dosage: 4 MILLIGRAM, ONCE A DAY
     Route: 064
     Dates: start: 2023, end: 20231024

REACTIONS (3)
  - Unresponsive to stimuli [Recovered/Resolved]
  - Neonatal dyspnoea [Recovered/Resolved]
  - Foetal exposure during pregnancy [Recovered/Resolved]

NARRATIVE: CASE EVENT DATE: 20231024
